FAERS Safety Report 16598299 (Version 1)
Quarter: 2019Q3

REPORT INFORMATION
  Report Type: Spontaneous
  Country: DE (occurrence: DE)
  Receive Date: 20190719
  Receipt Date: 20190719
  Transmission Date: 20191004
  Serious: Yes (Hospitalization, Other)
  Sender: FDA-Public Use
  Company Number: DE-PFIZER INC-2019301788

PATIENT
  Age: 52 Year
  Sex: Male
  Weight: 71 kg

DRUGS (15)
  1. LOPERAMID [Concomitant]
     Active Substance: LOPERAMIDE
     Dosage: 2 MG, AS NEEDED
     Route: 048
  2. TRAMAL LONG [Concomitant]
     Active Substance: TRAMADOL
     Dosage: 100 MG, 2X/DAY, 1-0-1-0
     Route: 048
  3. CYCLOPHOSPHAMIDE. [Suspect]
     Active Substance: CYCLOPHOSPHAMIDE
     Dosage: 600 MG/M2, ACCORDING TO SCHEME, LAST DOSE ON 27JAN2018
     Route: 042
  4. MOVICOL [Concomitant]
     Active Substance: POLYETHYLENE GLYCOL 3350\POTASSIUM CHLORIDE\SODIUM BICARBONATE\SODIUM CHLORIDE
     Dosage: 13.125 MG, 1X/DAY, 1-0-0-0
     Route: 048
  5. ACTRAPID [Concomitant]
     Active Substance: INSULIN HUMAN
     Dosage: 100 IU, AS NEEDED, FLEXPEN 100IU/ML, PRE-FILLED PEN
     Route: 058
  6. CALCIUM [Concomitant]
     Active Substance: CALCIUM
     Dosage: 1 G, 1X/DAY, 0-1-0-0
     Route: 048
  7. VINCRISTINE SULFATE. [Suspect]
     Active Substance: VINCRISTINE SULFATE
     Dosage: 2 MG, ACCORDING TO SCHEME, LAST DOSE ON 26JAN2018
     Route: 042
  8. TOPOTECAN HYDROCHLORIDE. [Suspect]
     Active Substance: TOPOTECAN HYDROCHLORIDE
     Dosage: 1 MG/M2, ACCORDING TO SCHEME, LAST DOSE ON 28JAN2018
     Route: 042
  9. METOCLOPRAMIDE. [Concomitant]
     Active Substance: METOCLOPRAMIDE
     Dosage: 10 MG, AS NEEDED
     Route: 048
  10. PANTOPRAZOLE [Concomitant]
     Active Substance: PANTOPRAZOLE
     Dosage: 40 MG, ALTERNATE DAY, 1-0-0-0
     Route: 048
  11. LEVEMIR [Concomitant]
     Active Substance: INSULIN DETEMIR
     Dosage: 4 IU, ACCORDING TO SCHEDULE, LEVEMIR 1000 IU, 100IU/ML
     Route: 058
  12. COTRIM FORTE [Concomitant]
     Active Substance: SULFAMETHOXAZOLE\TRIMETHOPRIM
     Dosage: 960 MG, 3X WEEK, 1-0-0-0, COTRIM FORTE 800MG/160MG
     Route: 048
  13. ONDANSETRON [Concomitant]
     Active Substance: ONDANSETRON
     Dosage: 8 MG, 2X/DAY, 1-0-1-0
     Route: 048
  14. ZOLEDRONIC ACID [Concomitant]
     Active Substance: ZOLEDRONIC ACID
     Dosage: 4 MG, EVERY 4 WEEKS, LAST ADMINISTRATION ON 04FEB
     Route: 042
  15. TOREM [TORASEMIDE] [Concomitant]
     Active Substance: TORSEMIDE
     Dosage: 10 MG, 1X/DAY, 1-0-0-0
     Route: 048

REACTIONS (5)
  - Fatigue [Unknown]
  - C-reactive protein increased [Unknown]
  - Haemoglobin decreased [Unknown]
  - Pyrexia [Unknown]
  - Blood sodium decreased [Unknown]

NARRATIVE: CASE EVENT DATE: 20180205
